FAERS Safety Report 7372479-7 (Version None)
Quarter: 2011Q1

REPORT INFORMATION
  Report Type: 
  Country: None (occurrence: None)
  Receive Date: 20110324
  Receipt Date: 20110311
  Transmission Date: 20110831
  Serious: Yes (Hospitalization, Other)
  Sender: FDA-Public Use
  Company Number: US-ACTELION-A-US2011-44497

PATIENT

DRUGS (9)
  1. NEXIUM [Concomitant]
  2. ALLOPURINOL [Concomitant]
  3. PREDNISONE [Concomitant]
  4. TADALAFIL [Concomitant]
  5. AMIODARONE HCL [Concomitant]
  6. TADALAFIL [Concomitant]
  7. TRACLEER [Suspect]
     Indication: PULMONARY ARTERIAL HYPERTENSION
     Dosage: 62.5 MG, BID
     Route: 048
     Dates: start: 20090928, end: 20091028
  8. TRACLEER [Suspect]
     Dosage: 125 MG, BID
     Route: 048
     Dates: start: 20091028
  9. POTASSIUM CHLORIDE [Concomitant]

REACTIONS (4)
  - PLEURAL EFFUSION [None]
  - CARDIAC FAILURE CONGESTIVE [None]
  - PERICARDIAL EFFUSION [None]
  - DYSPNOEA [None]
